FAERS Safety Report 4602915-8 (Version None)
Quarter: 2005Q1

REPORT INFORMATION
  Report Type: 
  Country: None (occurrence: None)
  Receive Date: 20050307
  Receipt Date: 20050228
  Transmission Date: 20050727
  Serious: Yes (Life-Threatening, Hospitalization)
  Sender: FDA-Public Use
  Company Number: 2005AP00555

PATIENT
  Age: 72 Year
  Sex: Female
  Weight: 49 kg

DRUGS (2)
  1. ARIMIDEX [Suspect]
     Indication: BREAST CANCER
     Dosage: 1 MG DAILY PO
     Route: 048
     Dates: end: 20050119
  2. ARIMIDEX [Suspect]
     Indication: BREAST CANCER
     Dosage: 1 MG DAILY PO
     Route: 048
     Dates: start: 20050215

REACTIONS (2)
  - ANGINA UNSTABLE [None]
  - CORONARY ARTERY STENOSIS [None]
